FAERS Safety Report 5100333-X (Version None)
Quarter: 2006Q3

REPORT INFORMATION
  Report Type: 
  Country: None (occurrence: None)
  Receive Date: 20060731
  Receipt Date: 20060516
  Transmission Date: 20061208
  Serious: No
  Sender: FDA-Public Use
  Company Number: 2006PV013952

PATIENT
  Age: 52 Year
  Sex: Female

DRUGS (5)
  1. BYETTA [Suspect]
     Dosage: 10 MCG;BID;SC, SEE IMAGE
     Route: 058
     Dates: start: 20060201, end: 20060301
  2. BYETTA [Suspect]
     Dosage: 10 MCG;BID;SC, SEE IMAGE
     Route: 058
     Dates: start: 20060301
  3. GLUCOPHAGE [Concomitant]
  4. AVANDIA [Concomitant]
  5. GLUCOTROL XL [Concomitant]

REACTIONS (1)
  - WEIGHT DECREASED [None]
